FAERS Safety Report 10433128 (Version 1)
Quarter: 2014Q3

REPORT INFORMATION
  Report Type: Spontaneous
  Country: US (occurrence: None)
  Receive Date: 20140815
  Receipt Date: 20140815
  Transmission Date: 20150326
  Serious: No
  Sender: FDA-Public Use
  Company Number: A-US2014-98095

PATIENT
  Age: 47 Year
  Sex: Female

DRUGS (2)
  1. TYVASO (TREPROSTINIL SODIUM) [Concomitant]
  2. OPSUMIT [Suspect]
     Active Substance: MACITENTAN
     Indication: PULMONARY ARTERIAL HYPERTENSION
     Route: 048

REACTIONS (5)
  - Stress [None]
  - Stress cardiomyopathy [None]
  - Local swelling [None]
  - Joint swelling [None]
  - Treatment noncompliance [None]
